FAERS Safety Report 7000687-3 (Version None)
Quarter: 2010Q3

REPORT INFORMATION
  Report Type: 
  Country: None (occurrence: None)
  Receive Date: 20100920
  Receipt Date: 20100204
  Transmission Date: 20110219
  Serious: No
  Sender: FDA-Public Use
  Company Number: US-ASTRAZENECA-2009SE28297

PATIENT
  Age: 418 Month
  Sex: Male
  Weight: 104.3 kg

DRUGS (11)
  1. SEROQUEL [Suspect]
     Indication: ANXIETY
     Route: 048
     Dates: start: 20010101, end: 20090801
  2. SEROQUEL [Suspect]
     Indication: PARANOIA
     Route: 048
     Dates: start: 20010101, end: 20090801
  3. SEROQUEL [Suspect]
     Indication: SLEEP DISORDER
     Route: 048
     Dates: start: 20010101, end: 20090801
  4. ABILIFY [Concomitant]
  5. CLOZARIL [Concomitant]
     Dosage: 0.5 TO 2 MG
  6. GEODON [Concomitant]
  7. HALDOL [Concomitant]
  8. RISPERDAL [Concomitant]
  9. THORAZINE [Concomitant]
  10. ZYPREXA [Concomitant]
  11. SYMBYAX [Concomitant]

REACTIONS (3)
  - ADVERSE DRUG REACTION [None]
  - OBESITY [None]
  - TYPE 2 DIABETES MELLITUS [None]
